FAERS Safety Report 6619691-X (Version None)
Quarter: 2010Q1

REPORT INFORMATION
  Report Type: 
  Country: None (occurrence: None)
  Receive Date: 20100309
  Receipt Date: 20100301
  Transmission Date: 20100710
  Serious: Yes (Other)
  Sender: FDA-Public Use
  Company Number: US-JNJFOC-20100208969

PATIENT
  Age: 24 Year
  Sex: Female

DRUGS (5)
  1. TOPAMAX [Suspect]
     Indication: DRUG USE FOR UNKNOWN INDICATION
     Route: 048
  2. MICRONOR [Suspect]
     Indication: CONTRACEPTION
     Route: 065
  3. CELEXA [Suspect]
     Indication: DRUG USE FOR UNKNOWN INDICATION
     Route: 048
  4. BENTYL [Suspect]
     Indication: IRRITABLE BOWEL SYNDROME
     Route: 048
  5. CORTISONE CREAM [Concomitant]
     Indication: RASH ERYTHEMATOUS
     Route: 061

REACTIONS (3)
  - ASTHENIA [None]
  - LUPUS-LIKE SYNDROME [None]
  - MYALGIA [None]
